FAERS Safety Report 7424987 (Version 2)
Quarter: 2013Q2

REPORT INFORMATION
  Report Type: Report from Study
  Country: SE (occurrence: SE)
  Receive Date: 20100618
  Receipt Date: 20130607
  Transmission Date: 20140414
  Serious: Yes (Hospitalization)
  Sender: FDA-Public Use
  Company Number: SE-JNJFOC-20100603227

PATIENT
  Sex: Male
  Weight: 96.5 kg

DRUGS (8)
  1. REMICADE [Suspect]
     Indication: CROHN^S DISEASE
     Route: 042
     Dates: start: 20090427
  2. REMICADE [Suspect]
     Indication: CROHN^S DISEASE
     Route: 042
     Dates: start: 20090302
  3. REMICADE [Suspect]
     Indication: CROHN^S DISEASE
     Route: 042
     Dates: start: 20090105
  4. REMICADE [Suspect]
     Indication: CROHN^S DISEASE
     Route: 042
     Dates: start: 20080212
  5. ASACOL [Concomitant]
     Indication: CROHN^S DISEASE
  6. FOLACIN [Concomitant]
  7. VITAMIN B [Concomitant]
  8. MAGNESIUM [Concomitant]

REACTIONS (1)
  - Anal abscess [Recovered/Resolved]
